FAERS Safety Report 10345007 (Version 2)
Quarter: 2014Q3

REPORT INFORMATION
  Report Type: Spontaneous
  Country: US (occurrence: US)
  Receive Date: 20140728
  Receipt Date: 20140812
  Transmission Date: 20150326
  Serious: Yes (Hospitalization)
  Sender: FDA-Public Use
  Company Number: US-SA-2014SA097933

PATIENT
  Sex: Male

DRUGS (8)
  1. NOVOLOG [Concomitant]
     Active Substance: INSULIN ASPART
     Indication: DIABETES MELLITUS
     Dates: start: 200908
  2. ASPIRIN. [Concomitant]
     Active Substance: ASPIRIN
     Indication: CARDIAC DISORDER
     Dosage: 325 MG
     Dates: start: 200908
  3. LANTUS SOLOSTAR [Suspect]
     Active Substance: INSULIN GLARGINE
     Indication: TYPE 2 DIABETES MELLITUS
     Dosage: DOSE:28 UNIT(S)
     Route: 065
     Dates: start: 20140703, end: 20140713
  4. CRESTOR [Concomitant]
     Active Substance: ROSUVASTATIN CALCIUM
     Dosage: 10
     Dates: start: 200908
  5. ALTACE [Concomitant]
     Active Substance: RAMIPRIL
     Dosage: 5 MG
     Dates: start: 200908
  6. PLAVIX [Concomitant]
     Active Substance: CLOPIDOGREL BISULFATE
     Dosage: 75 MG
     Dates: start: 200908
  7. LANTUS SOLOSTAR [Suspect]
     Active Substance: INSULIN GLARGINE
     Indication: TYPE 2 DIABETES MELLITUS
     Dosage: DOSE:32 UNIT(S)
     Route: 065
     Dates: start: 20110312
  8. SOLOSTAR [Concomitant]
     Active Substance: DEVICE
     Indication: TYPE 2 DIABETES MELLITUS

REACTIONS (7)
  - Heart rate increased [Recovering/Resolving]
  - Anxiety [Recovered/Resolved]
  - Hyperhidrosis [Recovered/Resolved]
  - Palpitations [Recovered/Resolved]
  - Loss of consciousness [Recovering/Resolving]
  - Dizziness [Recovering/Resolving]
  - Hypertension [Recovered/Resolved]

NARRATIVE: CASE EVENT DATE: 201407
